FAERS Safety Report 7414393-4 (Version None)
Quarter: 2011Q2

REPORT INFORMATION
  Report Type: 
  Country: None (occurrence: None)
  Receive Date: 20110414
  Receipt Date: 20110411
  Transmission Date: 20111010
  Serious: Yes (Hospitalization, Other)
  Sender: FDA-Public Use
  Company Number: US-PFIZER INC-2011020848

PATIENT
  Sex: Male

DRUGS (3)
  1. CHANTIX [Suspect]
     Indication: SMOKING CESSATION THERAPY
     Dosage: STARTER PACK AND THREE CONTINUATION PACKS
     Dates: start: 20080204, end: 20080601
  2. CHANTIX [Suspect]
     Dosage: STARTER PACK
     Dates: start: 20090601, end: 20090701
  3. OMEPRAZOLE [Concomitant]
     Indication: GASTROOESOPHAGEAL REFLUX DISEASE
     Dosage: UNK
     Dates: start: 20060501

REACTIONS (11)
  - POSTICTAL PARALYSIS [None]
  - PANIC DISORDER [None]
  - ANXIETY [None]
  - MENTAL DISORDER [None]
  - HYPERVENTILATION [None]
  - PARAESTHESIA [None]
  - MEMORY IMPAIRMENT [None]
  - ASTHENIA [None]
  - HALLUCINATION, VISUAL [None]
  - APHASIA [None]
  - PARTIAL SEIZURES [None]
